FAERS Safety Report 10860741 (Version 1)
Quarter: 2015Q1

REPORT INFORMATION
  Report Type: Report from Study
  Country: US (occurrence: US)
  Receive Date: 20150224
  Receipt Date: 20150224
  Transmission Date: 20150721
  Serious: Yes (Other)
  Sender: FDA-Public Use
  Company Number: PHEH2015US002951

PATIENT
  Age: 54 Year
  Sex: Female

DRUGS (11)
  1. ASPIRIN. [Concomitant]
     Active Substance: ASPIRIN
     Indication: PRODUCT USED FOR UNKNOWN INDICATION
     Route: 065
  2. CYANOCOBALAMIN. [Concomitant]
     Active Substance: CYANOCOBALAMIN
     Indication: PRODUCT USED FOR UNKNOWN INDICATION
     Route: 065
  3. LANTUS [Concomitant]
     Active Substance: INSULIN GLARGINE
     Indication: PRODUCT USED FOR UNKNOWN INDICATION
     Route: 065
  4. DIOVAN [Concomitant]
     Active Substance: VALSARTAN
     Indication: PRODUCT USED FOR UNKNOWN INDICATION
     Route: 065
  5. EFFIENT [Concomitant]
     Active Substance: PRASUGREL HYDROCHLORIDE
     Indication: PRODUCT USED FOR UNKNOWN INDICATION
     Route: 065
  6. HUMALOG [Concomitant]
     Active Substance: INSULIN LISPRO
     Indication: PRODUCT USED FOR UNKNOWN INDICATION
     Route: 065
  7. GABAPENTIN. [Concomitant]
     Active Substance: GABAPENTIN
     Indication: PRODUCT USED FOR UNKNOWN INDICATION
     Route: 065
  8. ACETAMINOPHEN W/HYDROCODONE [Concomitant]
     Active Substance: ACETAMINOPHEN\HYDROCODONE
     Indication: PRODUCT USED FOR UNKNOWN INDICATION
     Route: 065
  9. TECFIDERA [Suspect]
     Active Substance: DIMETHYL FUMARATE
     Indication: RELAPSING-REMITTING MULTIPLE SCLEROSIS
     Dosage: UNK
     Route: 065
     Dates: start: 201310
  10. GILENYA [Suspect]
     Active Substance: FINGOLIMOD HYDROCHLORIDE
     Indication: RELAPSING-REMITTING MULTIPLE SCLEROSIS
     Dosage: 0.5 MG, UNK
     Route: 048
  11. COREG CR [Concomitant]
     Active Substance: CARVEDILOL PHOSPHATE
     Indication: PRODUCT USED FOR UNKNOWN INDICATION
     Route: 065

REACTIONS (36)
  - Central nervous system lesion [Unknown]
  - Tremor [Unknown]
  - Dysgeusia [Unknown]
  - Apnoea [Unknown]
  - Red cell distribution width increased [Unknown]
  - Protein total increased [Unknown]
  - Balance disorder [Unknown]
  - Sensory disturbance [Unknown]
  - Somnolence [Unknown]
  - Pruritus [Unknown]
  - Blood sodium decreased [Unknown]
  - Chest pain [Unknown]
  - Mean cell haemoglobin decreased [Unknown]
  - Malaise [Unknown]
  - Blood chloride decreased [Unknown]
  - Blood pressure increased [Unknown]
  - Fall [Unknown]
  - Carpal tunnel syndrome [Unknown]
  - Hypoaesthesia [Unknown]
  - Neuropathy peripheral [Unknown]
  - Haemoglobin decreased [Unknown]
  - Somatosensory evoked potentials abnormal [Unknown]
  - Neck pain [Unknown]
  - Musculoskeletal stiffness [Unknown]
  - Globulins increased [Unknown]
  - Tenderness [Unknown]
  - Fatigue [Unknown]
  - Haematocrit decreased [Unknown]
  - Nuclear magnetic resonance imaging brain abnormal [Unknown]
  - Headache [Unknown]
  - Back pain [Unknown]
  - Paraesthesia [Unknown]
  - Muscle spasms [Unknown]
  - Sleep disorder [Unknown]
  - Mean cell volume decreased [Unknown]
  - JC virus test positive [Unknown]

NARRATIVE: CASE EVENT DATE: 20141217
